FAERS Safety Report 6665864-X (Version None)
Quarter: 2010Q2

REPORT INFORMATION
  Report Type: 
  Country: None (occurrence: None)
  Receive Date: 20100402
  Receipt Date: 20100324
  Transmission Date: 20101027
  Serious: Yes (Other)
  Sender: FDA-Public Use
  Company Number: JP-PFIZER INC-2010013917

PATIENT
  Age: 44 Year
  Sex: Male
  Weight: 69.6 kg

DRUGS (1)
  1. LIPITOR [Suspect]
     Indication: TYPE IIA HYPERLIPIDAEMIA
     Dosage: 5 MG, 2X/DAY
     Route: 048
     Dates: start: 20091011, end: 20100201

REACTIONS (1)
  - VENTRICULAR EXTRASYSTOLES [None]
